FAERS Safety Report 24142898 (Version 2)
Quarter: 2024Q3

REPORT INFORMATION
  Report Type: Spontaneous
  Country: JP (occurrence: JP)
  Receive Date: 20240726
  Receipt Date: 20240828
  Transmission Date: 20241016
  Serious: Yes (Life-Threatening, Hospitalization, Other)
  Sender: DAIICHI
  Company Number: JP-DAIICHI SANKYO, INC.-DSJ-2024-136944

PATIENT
  Age: 59 Year
  Sex: Female
  Weight: 57 kg

DRUGS (11)
  1. EDOXABAN TOSYLATE [Suspect]
     Active Substance: EDOXABAN TOSYLATE
     Indication: Atrial fibrillation
     Dosage: 30 MG ON THE MORNING OF AND ON THE DAY PRECEDING THE EMERGENCY SURGERY
     Route: 048
  2. EDOXABAN TOSYLATE [Suspect]
     Active Substance: EDOXABAN TOSYLATE
     Dosage: UNK, RESTARTED ON POSTOPERATIVE DAY 12
     Route: 048
  3. HEPARIN [Suspect]
     Active Substance: HEPARIN SODIUM
     Indication: Anticoagulant therapy
     Dosage: 24,000 U
     Route: 065
  4. HEPARIN [Suspect]
     Active Substance: HEPARIN SODIUM
     Dosage: 6,000 U
     Route: 065
  5. HEPARIN [Suspect]
     Active Substance: HEPARIN SODIUM
     Dosage: 5,000 U
     Route: 065
  6. HEPARIN [Suspect]
     Active Substance: HEPARIN SODIUM
     Dosage: 15,000 U
     Route: 065
  7. HEPARIN [Suspect]
     Active Substance: HEPARIN SODIUM
     Dosage: 20,000 U
     Route: 065
  8. ANDEXANET ALFA [Suspect]
     Active Substance: ANDEXANET ALFA
     Indication: Procoagulant therapy
     Dosage: BOLUS DOSE 800 MG, 480 MG/HOUR
     Route: 065
  9. NEUART [Concomitant]
     Active Substance: ANTITHROMBIN III HUMAN
     Indication: Anticoagulant therapy
     Dosage: 1,000U
     Route: 065
  10. ARGATROBAN [Concomitant]
     Active Substance: ARGATROBAN
     Indication: Anticoagulant therapy
     Dosage: BOLUS DOSE 10 MG, 3 MG/HOUR
     Route: 065
  11. NAFAMOSTAT [Concomitant]
     Active Substance: NAFAMOSTAT
     Indication: Anticoagulant therapy
     Dosage: 120 MG/HOUR
     Route: 065

REACTIONS (3)
  - Haemorrhage [Unknown]
  - Aortic dissection [Unknown]
  - Heparin resistance [Unknown]
